FAERS Safety Report 8652303 (Version 2)
Quarter: 2012Q4

REPORT INFORMATION
  Report Type: 
  Country: AU (occurrence: AU)
  Receive Date: 20120706
  Receipt Date: 20120829
  Transmission Date: 20130627
  Serious: Yes (Hospitalization)
  Sender: FDA-Public Use
  Company Number: PHHY2012AU057600

PATIENT
  Age: 33 Year
  Sex: Male

DRUGS (1)
  1. CLOZARIL [Suspect]
     Dosage: 150 mg
     Dates: start: 20040601

REACTIONS (5)
  - Schizophrenia [Recovered/Resolved]
  - Disorientation [Recovered/Resolved]
  - Judgement impaired [Recovered/Resolved]
  - Anosognosia [Unknown]
  - Psychotic disorder [Recovered/Resolved]
